FAERS Safety Report 9068849 (Version 3)
Quarter: 2013Q1

REPORT INFORMATION
  Report Type: Spontaneous
  Country: US (occurrence: US)
  Receive Date: 20130215
  Receipt Date: 20130305
  Transmission Date: 20140127
  Serious: Yes (Death, Other)
  Sender: FDA-Public Use
  Company Number: US-PFIZER INC-2013057302

PATIENT
  Age: 38 Year
  Sex: Male

DRUGS (3)
  1. PRISTIQ [Suspect]
     Dosage: 50 MG, 1X/DAY
     Route: 048
     Dates: start: 201112
  2. BYSTOLIC [Concomitant]
     Dosage: 10 MG, UNK
  3. TRAMADOL [Concomitant]
     Dosage: 50 MG, UNK

REACTIONS (1)
  - Death [Fatal]
